FAERS Safety Report 7542631-6 (Version None)
Quarter: 2011Q2

REPORT INFORMATION
  Report Type: 
  Country: None (occurrence: None)
  Receive Date: 20110613
  Receipt Date: 20110601
  Transmission Date: 20111010
  Serious: Yes (Hospitalization)
  Sender: FDA-Public Use
  Company Number: PHHY2011JP47658

PATIENT
  Age: 51 Year
  Sex: Female

DRUGS (4)
  1. METHYLPREDNISOLONE [Suspect]
     Dosage: UNK MG, UNK
  2. METHYLPREDNISOLONE [Suspect]
     Dosage: 12 MG, DAILY
     Route: 048
  3. PREDNISOLONE [Suspect]
     Dosage: 40 MG, DAILY
  4. AZATHIOPRINE [Concomitant]
     Dosage: 50 MG, UNK

REACTIONS (17)
  - CEREBRAL INFARCTION [None]
  - PLEURAL EFFUSION [None]
  - BLOOD PRESSURE DECREASED [None]
  - STROKE VOLUME DECREASED [None]
  - HYPOXIA [None]
  - PARESIS [None]
  - PULMONARY ARTERIAL WEDGE PRESSURE INCREASED [None]
  - HYPOAESTHESIA [None]
  - PULMONARY OEDEMA [None]
  - PULMONARY ARTERIAL PRESSURE INCREASED [None]
  - MONONEUROPATHY MULTIPLEX [None]
  - CARDIAC DISORDER [None]
  - CARDIAC INDEX DECREASED [None]
  - ANURIA [None]
  - CYTOMEGALOVIRUS VIRAEMIA [None]
  - RENAL FAILURE ACUTE [None]
  - PO2 DECREASED [None]
